FAERS Safety Report 7382290-9 (Version None)
Quarter: 2011Q1

REPORT INFORMATION
  Report Type: 
  Country: None (occurrence: None)
  Receive Date: 20110329
  Receipt Date: 20110322
  Transmission Date: 20110831
  Serious: Yes (Other)
  Sender: FDA-Public Use
  Company Number: US-RB-024430-11

PATIENT
  Sex: Female

DRUGS (3)
  1. SUBUTEX [Suspect]
     Indication: DRUG DEPENDENCE
     Route: 060
     Dates: start: 20110310
  2. ULTRAM [Suspect]
     Indication: PAIN MANAGEMENT
     Dosage: DOSAGE INFORMATION UNKNOWN
     Route: 065
     Dates: end: 20110301
  3. SUBOXONE [Suspect]
     Indication: DRUG DEPENDENCE
     Route: 060
     Dates: start: 20100901, end: 20110309

REACTIONS (2)
  - GRAND MAL CONVULSION [None]
  - DRUG EXPOSURE DURING PREGNANCY [None]
